FAERS Safety Report 4804184-2 (Version None)
Quarter: 2005Q4

REPORT INFORMATION
  Report Type: 
  Country: None (occurrence: None)
  Receive Date: 20051020
  Receipt Date: 20051012
  Transmission Date: 20060501
  Serious: Yes (Hospitalization, Other)
  Sender: FDA-Public Use
  Company Number: 200519144GDDC

PATIENT
  Age: 53 Year
  Sex: Male
  Weight: 90.8 kg

DRUGS (17)
  1. METRONIDAZOLE [Suspect]
     Indication: DIARRHOEA
     Route: 048
     Dates: start: 20050924, end: 20050928
  2. ACYCLOVIR [Concomitant]
  3. CASPOFUNGIN [Concomitant]
  4. ALLOPURINOL [Concomitant]
  5. MEROPENEM [Concomitant]
  6. ANUSOL                                  /NET/ [Concomitant]
  7. TEICOPLANIN [Concomitant]
  8. TAZOCIN [Concomitant]
  9. GENTAMICIN [Concomitant]
  10. CHLORHEXIDINE [Concomitant]
  11. NYSTATIN [Concomitant]
  12. LANSOPRAZOLE [Concomitant]
  13. RAMIPRIL [Concomitant]
  14. DOXAZOSIN [Concomitant]
  15. BECLOMETHASONE DIPROPIONATE [Concomitant]
  16. SLOW-K [Concomitant]
  17. TPN [Concomitant]

REACTIONS (3)
  - ARTHRALGIA [None]
  - MYALGIA [None]
  - PAIN [None]
